FAERS Safety Report 8581343-7 (Version None)
Quarter: 2012Q3

REPORT INFORMATION
  Report Type: 
  Country: None (occurrence: None)
  Receive Date: 20120727
  Receipt Date: 20120711
  Transmission Date: 20120928
  Serious: Yes (Death, Hospitalization, Other)
  Sender: FDA-Public Use
  Company Number: 2012MA008611

PATIENT
  Age: 84 Year
  Sex: Female

DRUGS (1)
  1. KADIAN [Suspect]
     Dates: end: 20100101

REACTIONS (5)
  - DRUG SCREEN POSITIVE [None]
  - TOXICITY TO VARIOUS AGENTS [None]
  - MENTAL STATUS CHANGES [None]
  - RESPIRATION ABNORMAL [None]
  - PNEUMONIA ASPIRATION [None]
